FAERS Safety Report 18714865 (Version 1)
Quarter: 2021Q1

REPORT INFORMATION
  Report Type: Spontaneous
  Country: CN (occurrence: CN)
  Receive Date: 20210107
  Receipt Date: 20210107
  Transmission Date: 20210419
  Serious: Yes (Hospitalization)
  Sender: FDA-Public Use
  Company Number: CN-BAXTER-2021BAX000133

PATIENT
  Age: 72 Year
  Sex: Female

DRUGS (6)
  1. PACLITAXEL. [Suspect]
     Active Substance: PACLITAXEL
     Indication: BREAST CANCER FEMALE
     Dosage: (ALBUMIN BOUND) (SELF?PREPARED), FIRST CHEMOTHERAPY
     Route: 065
  2. SODIUM CHLORIDE. [Suspect]
     Active Substance: SODIUM CHLORIDE
     Dosage: CYCLOPHOSPHAMIDE 0.8 G+ SODIUM CHLORIDE 100 ML, SECOND CHEMOTHERAPY
     Route: 041
     Dates: start: 20201121, end: 20201121
  3. ENDOXAN [Suspect]
     Active Substance: CYCLOPHOSPHAMIDE
     Indication: BREAST CANCER FEMALE
     Dosage: CYCLOPHOSPHAMIDE + SODIUM CHLORIDE, FIRST CHEMOTHERAPY
     Route: 041
  4. PACLITAXEL. [Suspect]
     Active Substance: PACLITAXEL
     Dosage: (ALBUMIN BOUND) (SELF?PREPARED), SECOND CHEMOTHERAPY
     Route: 065
     Dates: start: 20201121, end: 20201121
  5. SODIUM CHLORIDE. [Suspect]
     Active Substance: SODIUM CHLORIDE
     Indication: MEDICATION DILUTION
     Dosage: CYCLOPHOSPHAMIDE + SODIUM CHLORIDE, FIRST CHEMOTHERAPY
     Route: 041
  6. ENDOXAN [Suspect]
     Active Substance: CYCLOPHOSPHAMIDE
     Dosage: CYCLOPHOSPHAMIDE 0.8G + SODIUM CHLORIDE 100 ML, SECOND CHEMOTHERAPY
     Route: 041
     Dates: start: 20201121, end: 20201121

REACTIONS (2)
  - Gastrointestinal disorder [Recovering/Resolving]
  - Dysphagia [Recovering/Resolving]

NARRATIVE: CASE EVENT DATE: 20201121
